FAERS Safety Report 20548499 (Version 2)
Quarter: 2022Q1

REPORT INFORMATION
  Report Type: Spontaneous
  Country: AR (occurrence: AR)
  Receive Date: 20220303
  Receipt Date: 20220331
  Transmission Date: 20220423
  Serious: Yes (Life-Threatening, Hospitalization)
  Sender: FDA-Public Use
  Company Number: AR-TEVA-2022-AR-2011648

PATIENT
  Age: 14 Year
  Sex: Female

DRUGS (2)
  1. AMLODIPINE [Suspect]
     Active Substance: AMLODIPINE BESYLATE
     Indication: Intentional overdose
     Dosage: 30 IMMEDIATE RELEASE TABLETS
     Route: 048
  2. AMLODIPINE [Suspect]
     Active Substance: AMLODIPINE BESYLATE
     Indication: Suicide attempt

REACTIONS (3)
  - Haemodynamic instability [Recovering/Resolving]
  - Acute pulmonary oedema [Recovering/Resolving]
  - Intentional overdose [Unknown]
